FAERS Safety Report 6786002-9 (Version None)
Quarter: 2010Q2

REPORT INFORMATION
  Report Type: 
  Country: None (occurrence: None)
  Receive Date: 20100623
  Receipt Date: 20100504
  Transmission Date: 20101027
  Serious: Yes (Other)
  Sender: FDA-Public Use
  Company Number: CH-PFIZER INC-2010075627

PATIENT
  Age: 22 Year
  Sex: Female

DRUGS (1)
  1. ZITHROMAX [Suspect]
     Indication: BRONCHIECTASIS
     Dosage: 250 MG, THREE TIMES WEEKLY
     Route: 048

REACTIONS (1)
  - MACROCYTOSIS [None]
